FAERS Safety Report 15905254 (Version 1)
Quarter: 2019Q1

REPORT INFORMATION
  Report Type: Spontaneous
  Country: BR (occurrence: BR)
  Receive Date: 20190204
  Receipt Date: 20190204
  Transmission Date: 20190417
  Serious: Yes (Other)
  Sender: FDA-Public Use
  Company Number: BR-TORRENT-00004844

PATIENT
  Age: 59 Year
  Sex: Female
  Weight: 72 kg

DRUGS (3)
  1. ROSUCOR [Suspect]
     Active Substance: ROSUVASTATIN CALCIUM
     Indication: BLOOD CHOLESTEROL
     Dates: start: 2016
  2. SYNTHROID 10 MG [Concomitant]
     Indication: HYPERTHYROIDISM
     Dosage: 1 TABLET DAILY
     Route: 048
     Dates: start: 2012
  3. ESPRAN [Suspect]
     Active Substance: ESCITALOPRAM OXALATE
     Indication: STRESS
     Dosage: 1 TABLET DAILY
     Route: 048
     Dates: start: 201810, end: 20190125

REACTIONS (8)
  - Erythema [Recovering/Resolving]
  - Poor quality product administered [Unknown]
  - Product taste abnormal [Unknown]
  - Off label use [Unknown]
  - Hypersensitivity [Unknown]
  - Pruritus [Recovering/Resolving]
  - Pigmentation disorder [Not Recovered/Not Resolved]
  - Product odour abnormal [Unknown]

NARRATIVE: CASE EVENT DATE: 201810
